FAERS Safety Report 22185560 (Version 1)
Quarter: 2023Q2

REPORT INFORMATION
  Report Type: Spontaneous
  Country: US (occurrence: None)
  Receive Date: 20230406
  Receipt Date: 20230406
  Transmission Date: 20230721
  Serious: Yes (Life-Threatening, Disabling, Other)
  Sender: FDA-Public Use
  Company Number: None

PATIENT
  Age: 45 Year
  Sex: Female
  Weight: 50.4 kg

DRUGS (3)
  1. DULOXETINE [Suspect]
     Active Substance: DULOXETINE
     Indication: Pain
     Dosage: OTHER QUANTITY : 30 CAPSULE(S);?FREQUENCY : DAILY;?
     Route: 048
     Dates: start: 20230209, end: 20230318
  2. DULOXETINE [Suspect]
     Active Substance: DULOXETINE
     Indication: Anxiety
  3. Synthroid Armour thyroid Norco Temazepam [Concomitant]

REACTIONS (1)
  - Suicidal ideation [None]

NARRATIVE: CASE EVENT DATE: 20230318
